FAERS Safety Report 5660272-2 (Version None)
Quarter: 2008Q1

REPORT INFORMATION
  Report Type: 
  Country: None (occurrence: None)
  Receive Date: 20080306
  Receipt Date: 20080221
  Transmission Date: 20080703
  Serious: Yes (Hospitalization)
  Sender: FDA-Public Use
  Company Number: MEDI-0006585

PATIENT
  Age: 23 Month
  Sex: 0

DRUGS (1)
  1. SYNAGIS [Suspect]
     Indication: CARDIAC DISORDER
     Dosage: INTRAMUSCULAR
     Route: 030

REACTIONS (1)
  - BRADYCARDIA [None]
